FAERS Safety Report 20010913 (Version 5)
Quarter: 2022Q1

REPORT INFORMATION
  Report Type: Report from Study
  Country: ZA (occurrence: ZA)
  Receive Date: 20211029
  Receipt Date: 20220119
  Transmission Date: 20220424
  Serious: Yes (Disabling, Other)
  Sender: FDA-Public Use
  Company Number: ZA-SA-SAC20211012001596

PATIENT
  Age: 50 Year
  Sex: Female

DRUGS (1)
  1. TERIFLUNOMIDE [Suspect]
     Active Substance: TERIFLUNOMIDE
     Indication: Relapsing-remitting multiple sclerosis
     Dosage: 14 MG, QD
     Route: 048
     Dates: start: 20210906

REACTIONS (40)
  - Aphasia [Unknown]
  - Multiple sclerosis [Recovering/Resolving]
  - Speech disorder [Not Recovered/Not Resolved]
  - Oral herpes [Not Recovered/Not Resolved]
  - Skin mass [Not Recovered/Not Resolved]
  - Lip pain [Not Recovered/Not Resolved]
  - Eye irritation [Not Recovered/Not Resolved]
  - Pruritus [Not Recovered/Not Resolved]
  - Swelling [Not Recovered/Not Resolved]
  - Dry eye [Not Recovered/Not Resolved]
  - Scratch [Recovered/Resolved]
  - Neuralgia [Unknown]
  - Dysarthria [Recovering/Resolving]
  - Initial insomnia [Unknown]
  - Back pain [Unknown]
  - Pain in extremity [Unknown]
  - Paraesthesia [Recovering/Resolving]
  - Swollen tongue [Recovered/Resolved]
  - Condition aggravated [Recovered/Resolved]
  - Tongue discolouration [Not Recovered/Not Resolved]
  - Tongue coated [Not Recovered/Not Resolved]
  - Lip dry [Recovering/Resolving]
  - Urticaria [Not Recovered/Not Resolved]
  - Blister [Not Recovered/Not Resolved]
  - Influenza like illness [Not Recovered/Not Resolved]
  - Rhinorrhoea [Not Recovered/Not Resolved]
  - Oropharyngeal pain [Not Recovered/Not Resolved]
  - Menstruation irregular [Not Recovered/Not Resolved]
  - Ear pain [Not Recovered/Not Resolved]
  - Chest pain [Not Recovered/Not Resolved]
  - Abdominal pain upper [Not Recovered/Not Resolved]
  - Rash [Recovering/Resolving]
  - Oral herpes [Not Recovered/Not Resolved]
  - Ill-defined disorder [Recovering/Resolving]
  - Contusion [Not Recovered/Not Resolved]
  - Musculoskeletal stiffness [Not Recovered/Not Resolved]
  - Dizziness [Recovered/Resolved]
  - Burning sensation [Unknown]
  - Alopecia [Not Recovered/Not Resolved]
  - Product dose omission issue [Unknown]

NARRATIVE: CASE EVENT DATE: 20210101
